FAERS Safety Report 11714408 (Version 4)
Quarter: 2016Q3

REPORT INFORMATION
  Report Type: Spontaneous
  Country: None (occurrence: US)
  Receive Date: 20151109
  Receipt Date: 20160725
  Transmission Date: 20161109
  Serious: Yes (Hospitalization)
  Sender: FDA-Public Use
  Company Number: US-SA-2015SA176283

PATIENT
  Sex: Male
  Weight: 18.14 kg

DRUGS (2)
  1. AUVI-Q [Suspect]
     Active Substance: EPINEPHRINE
     Indication: FOOD ALLERGY
     Dosage: UNK, IM OR SC
  2. AUVI-Q [Suspect]
     Active Substance: EPINEPHRINE
     Dates: start: 20150913, end: 20150913

REACTIONS (4)
  - Agitation [Recovered/Resolved]
  - Swelling [None]
  - Drug ineffective [Unknown]
  - Anger [Recovered/Resolved]
